FAERS Safety Report 10329584 (Version 4)
Quarter: 2014Q3

REPORT INFORMATION
  Report Type: Spontaneous
  Country: IT (occurrence: IT)
  Receive Date: 20140721
  Receipt Date: 20140917
  Transmission Date: 20150326
  Serious: Yes (Hospitalization)
  Sender: FDA-Public Use
  Company Number: IT-PFIZER INC-2014202247

PATIENT
  Age: 83 Year
  Sex: Female

DRUGS (2)
  1. CONGESCOR [Concomitant]
     Active Substance: BISOPROLOL
     Dosage: UNK
     Dates: start: 20121115, end: 20131115
  2. ZOLOFT [Suspect]
     Active Substance: SERTRALINE HYDROCHLORIDE
     Dosage: UNK
     Route: 048
     Dates: start: 20121115, end: 20131115

REACTIONS (1)
  - Subarachnoid haemorrhage [Recovering/Resolving]

NARRATIVE: CASE EVENT DATE: 20131115
